FAERS Safety Report 6718614-2 (Version None)
Quarter: 2010Q2

REPORT INFORMATION
  Report Type: 
  Country: None (occurrence: None)
  Receive Date: 20100510
  Receipt Date: 20100506
  Transmission Date: 20101027
  Serious: Yes (Hospitalization)
  Sender: FDA-Public Use
  Company Number: FR-MERCK-1005FRA00019

PATIENT
  Age: 83 Year
  Sex: Female

DRUGS (10)
  1. NOROXIN [Suspect]
     Indication: CYSTITIS
     Route: 048
     Dates: start: 20090820, end: 20090831
  2. LASIX [Suspect]
     Indication: HYPERTENSION
     Route: 048
     Dates: end: 20090823
  3. COTAREG [Suspect]
     Indication: HYPERTENSION
     Route: 048
     Dates: end: 20090823
  4. CORDARONE [Concomitant]
     Indication: ATRIAL FIBRILLATION
     Route: 048
  5. PREVISCAN [Concomitant]
     Route: 048
  6. LEXOMIL [Concomitant]
     Route: 048
     Dates: start: 20090928
  7. NITRODERM [Concomitant]
     Route: 061
  8. IMOVANE [Concomitant]
     Route: 065
  9. COZAAR [Concomitant]
     Route: 048
  10. TANAKAN [Concomitant]
     Route: 048

REACTIONS (5)
  - ASTHENIA [None]
  - HYPOCHLORAEMIA [None]
  - HYPOKALAEMIA [None]
  - HYPONATRAEMIA [None]
  - VOMITING [None]
